FAERS Safety Report 6509867-4 (Version None)
Quarter: 2009Q4

REPORT INFORMATION
  Report Type: 
  Country: None (occurrence: None)
  Receive Date: 20091222
  Receipt Date: 20091218
  Transmission Date: 20100525
  Serious: Yes (Death)
  Sender: FDA-Public Use
  Company Number: JP-ASTRAZENECA-2009SE32911

PATIENT
  Age: 60 Year
  Sex: Male

DRUGS (3)
  1. ANAPEINE INJECTION 7.5MG/ML [Suspect]
     Indication: NERVE BLOCK
     Route: 053
     Dates: start: 20091210, end: 20091210
  2. XYLOCAINE [Suspect]
     Indication: NERVE BLOCK
     Route: 053
     Dates: start: 20091210, end: 20091210
  3. XYLOCAINE [Suspect]
     Dosage: 1% WITH EPINEPHRINE 200 MG DAILY
     Route: 053

REACTIONS (2)
  - CARDIAC ARREST [None]
  - RESPIRATORY ARREST [None]
